FAERS Safety Report 25010422 (Version 3)
Quarter: 2025Q3

REPORT INFORMATION
  Report Type: Spontaneous
  Country: US (occurrence: US)
  Receive Date: 20250225
  Receipt Date: 20250718
  Transmission Date: 20251020
  Serious: Yes (Other)
  Sender: AMGEN
  Company Number: US-AMGEN-USASP2025034729

PATIENT

DRUGS (2)
  1. PREDNISONE [Suspect]
     Active Substance: PREDNISONE
     Indication: Giant cell arteritis
     Dosage: UNK, QD, (DOSE BETWEEN 20MG AND 60 MG)/ PREDNISONE DOSE {30 MG/D OR }30 MG/D
     Route: 065
  2. TOCILIZUMAB [Concomitant]
     Active Substance: TOCILIZUMAB
     Indication: Giant cell arteritis
     Route: 058

REACTIONS (40)
  - Poisoning [Unknown]
  - Neoplasm malignant [Unknown]
  - Adverse event [Unknown]
  - Surgery [Unknown]
  - Drug effective for unapproved indication [Unknown]
  - Treatment failure [Unknown]
  - Therapy non-responder [Unknown]
  - Blood disorder [Unknown]
  - Lymphatic disorder [Unknown]
  - Cardiac disorder [Unknown]
  - Giant cell arteritis [Unknown]
  - Ear disorder [Unknown]
  - Endocrine disorder [Unknown]
  - Eye disorder [Unknown]
  - Gastrointestinal disorder [Unknown]
  - Immune system disorder [Unknown]
  - Infection [Unknown]
  - Laboratory test abnormal [Unknown]
  - Connective tissue disorder [Unknown]
  - Malnutrition [Unknown]
  - Musculoskeletal disorder [Unknown]
  - Neoplasm [Unknown]
  - Nervous system disorder [Unknown]
  - Mental disorder [Unknown]
  - Renal disorder [Unknown]
  - Urinary tract disorder [Unknown]
  - Respiratory disorder [Unknown]
  - Reproductive tract disorder [Unknown]
  - Skin disorder [Unknown]
  - Post procedural complication [Unknown]
  - Angiopathy [Unknown]
  - Benign neoplasm [Unknown]
  - Medical procedure [Unknown]
  - Inner ear disorder [Unknown]
  - Infestation [Unknown]
  - Metabolic disorder [Unknown]
  - Injury [Unknown]
  - Breast disorder [Unknown]
  - Mediastinal disorder [Unknown]
  - Off label use [Unknown]
